FAERS Safety Report 4816664-4 (Version None)
Quarter: 2005Q4

REPORT INFORMATION
  Report Type: 
  Country: None (occurrence: None)
  Receive Date: 20051028
  Receipt Date: 20051015
  Transmission Date: 20060501
  Serious: Yes (Other)
  Sender: FDA-Public Use
  Company Number: 2005BI017005

PATIENT
  Age: 35 Year
  Sex: Female
  Weight: 52.1637 kg

DRUGS (13)
  1. AVONEX [Suspect]
     Indication: MULTIPLE SCLEROSIS
     Dosage: 30 UG; QW; IM
     Route: 030
     Dates: start: 20000101, end: 20020101
  2. AVONEX [Suspect]
     Indication: MULTIPLE SCLEROSIS
     Dosage: 30 UG; QW; IM
     Route: 030
     Dates: end: 20030919
  3. AVONEX [Suspect]
     Indication: MULTIPLE SCLEROSIS
     Dosage: 30 UG; QW; IM
     Route: 030
     Dates: start: 20040519, end: 20050501
  4. AVONEX [Suspect]
     Indication: MULTIPLE SCLEROSIS
     Dosage: 30 UG; QW; IM
     Route: 030
     Dates: start: 20050101, end: 20050923
  5. AVONEX [Suspect]
     Indication: MULTIPLE SCLEROSIS
     Dosage: 30 UG; QW; IM
     Route: 030
     Dates: start: 20030101
  6. REBIF [Concomitant]
  7. PAXIL [Concomitant]
  8. NEURONTIN [Concomitant]
  9. EFFEXOR [Concomitant]
  10. ZANAFLEX [Concomitant]
  11. FLOMAX [Concomitant]
  12. DITROPAN XL [Concomitant]
  13. NOVANTRONE [Concomitant]

REACTIONS (12)
  - ASTHENIA [None]
  - BALANCE DISORDER [None]
  - CONDITION AGGRAVATED [None]
  - DRUG INEFFECTIVE [None]
  - FALL [None]
  - FATIGUE [None]
  - FEELING COLD [None]
  - INFLUENZA LIKE ILLNESS [None]
  - MALIGNANT MELANOMA [None]
  - MULTIPLE SCLEROSIS RELAPSE [None]
  - POST PROCEDURAL COMPLICATION [None]
  - RIB FRACTURE [None]
